FAERS Safety Report 7768002-5 (Version None)
Quarter: 2011Q3

REPORT INFORMATION
  Report Type: 
  Country: None (occurrence: None)
  Receive Date: 20110922
  Receipt Date: 20101230
  Transmission Date: 20111222
  Serious: No
  Sender: FDA-Public Use
  Company Number: US-ASTRAZENECA-2010SE61405

PATIENT
  Age: 58 Year
  Sex: Male

DRUGS (2)
  1. CLONOPIN [Concomitant]
  2. SEROQUEL XR [Suspect]
     Indication: BIPOLAR DISORDER
     Route: 048

REACTIONS (6)
  - WEIGHT INCREASED [None]
  - INCORRECT DOSE ADMINISTERED [None]
  - NIGHT SWEATS [None]
  - EXCESSIVE EYE BLINKING [None]
  - CONFUSIONAL STATE [None]
  - PALPITATIONS [None]
